FAERS Safety Report 6141410-4 (Version None)
Quarter: 2009Q2

REPORT INFORMATION
  Report Type: 
  Country: None (occurrence: None)
  Receive Date: 20090401
  Receipt Date: 20090401
  Transmission Date: 20091009
  Serious: Yes (Hospitalization)
  Sender: FDA-Public Use
  Company Number: None

PATIENT
  Age: 61 Year
  Sex: Male
  Weight: 108 kg

DRUGS (1)
  1. ETIDRONATE DISODIUM [Suspect]

REACTIONS (3)
  - ABSCESS [None]
  - CELLULITIS [None]
  - OSTEONECROSIS [None]
